FAERS Safety Report 5381192-7 (Version None)
Quarter: 2007Q3

REPORT INFORMATION
  Report Type: 
  Country: None (occurrence: None)
  Receive Date: 20070706
  Receipt Date: 20070629
  Transmission Date: 20080115
  Serious: Yes (Other)
  Sender: FDA-Public Use
  Company Number: JP-MERCK-0706USA04202

PATIENT
  Age: 65 Year
  Sex: Female

DRUGS (6)
  1. ZETIA [Suspect]
     Indication: HYPERCHOLESTEROLAEMIA
     Route: 048
     Dates: start: 20070613, end: 20070615
  2. NORVASC [Concomitant]
     Route: 065
     Dates: start: 20060301, end: 20070616
  3. MICARDIS [Concomitant]
     Route: 065
     Dates: start: 20060301, end: 20070614
  4. JUVELA N [Concomitant]
     Route: 065
     Dates: start: 20060301, end: 20070616
  5. JUVELA N [Concomitant]
     Route: 065
     Dates: end: 20070616
  6. LIVALO [Concomitant]
     Route: 065
     Dates: start: 20060301

REACTIONS (2)
  - ASTHENIA [None]
  - URTICARIA [None]
